FAERS Safety Report 24652551 (Version 1)
Quarter: 2024Q4

REPORT INFORMATION
  Report Type: Spontaneous
  Country: JP (occurrence: JP)
  Receive Date: 20241122
  Receipt Date: 20241122
  Transmission Date: 20250114
  Serious: Yes (Other)
  Sender: ACCORD
  Company Number: JP-Accord-456772

PATIENT
  Age: 77 Year
  Sex: Male

DRUGS (12)
  1. DOCETAXEL [Suspect]
     Active Substance: DOCETAXEL
     Indication: Mixed adenoneuroendocrine carcinoma
     Dosage: ONCE EVERY 21 DAYS AT A DOSE OF 70 MG/M2 FOR 4 COURSES
  2. DEGARELIX [Concomitant]
     Active Substance: DEGARELIX
     Indication: Mixed adenoneuroendocrine carcinoma
     Dosage: INITIAL DOSE
  3. DAROLUTAMIDE [Suspect]
     Active Substance: DAROLUTAMIDE
     Indication: Mixed adenoneuroendocrine carcinoma
  4. DEGARELIX [Concomitant]
     Active Substance: DEGARELIX
     Indication: Prostate cancer metastatic
     Dosage: INITIAL DOSE
  5. DAROLUTAMIDE [Suspect]
     Active Substance: DAROLUTAMIDE
     Indication: Metastases to lymph nodes
  6. DAROLUTAMIDE [Suspect]
     Active Substance: DAROLUTAMIDE
     Indication: Metastases to bone
  7. DAROLUTAMIDE [Suspect]
     Active Substance: DAROLUTAMIDE
     Indication: Metastases to neck
  8. DOCETAXEL [Suspect]
     Active Substance: DOCETAXEL
     Indication: Metastases to lymph nodes
     Dosage: ONCE EVERY 21 DAYS AT A DOSE OF 70 MG/M2 FOR 4 COURSES
  9. DOCETAXEL [Suspect]
     Active Substance: DOCETAXEL
     Indication: Metastases to bone
     Dosage: ONCE EVERY 21 DAYS AT A DOSE OF 70 MG/M2 FOR 4 COURSES
  10. DOCETAXEL [Suspect]
     Active Substance: DOCETAXEL
     Indication: Metastases to neck
     Dosage: ONCE EVERY 21 DAYS AT A DOSE OF 70 MG/M2 FOR 4 COURSES
  11. DAROLUTAMIDE [Suspect]
     Active Substance: DAROLUTAMIDE
     Indication: Prostate cancer metastatic
  12. DOCETAXEL [Suspect]
     Active Substance: DOCETAXEL
     Indication: Prostate cancer metastatic
     Dosage: ONCE EVERY 21 DAYS AT A DOSE OF 70 MG/M2 FOR 4 COURSES

REACTIONS (1)
  - Hepatic failure [Recovered/Resolved]
